FAERS Safety Report 5741869-8 (Version None)
Quarter: 2008Q2

REPORT INFORMATION
  Report Type: 
  Country: None (occurrence: None)
  Receive Date: 20080514
  Receipt Date: 20080514
  Transmission Date: 20081010
  Serious: Yes (Other)
  Sender: FDA-Public Use
  Company Number: None

PATIENT
  Age: 59 Year
  Sex: Female
  Weight: 61.2356 kg

DRUGS (3)
  1. LIPITOR [Suspect]
  2. LOVASTATIN [Suspect]
  3. SIMVASTATIN [Suspect]

REACTIONS (1)
  - ONYCHOCLASIS [None]
